FAERS Safety Report 9570906 (Version 1)
Quarter: 2013Q3

REPORT INFORMATION
  Report Type: Spontaneous
  Country: US (occurrence: None)
  Receive Date: 20130927
  Receipt Date: 20130927
  Transmission Date: 20140515
  Serious: No
  Sender: FDA-Public Use
  Company Number: None

PATIENT
  Age: 58 Year
  Sex: 0

DRUGS (1)
  1. XALATAN [Suspect]
     Dosage: 1 DROP IVS  A DAY

REACTIONS (2)
  - Ocular hyperaemia [None]
  - Burning sensation [None]
